FAERS Safety Report 22171340 (Version 1)
Quarter: 2023Q2

REPORT INFORMATION
  Report Type: Spontaneous
  Country: FR (occurrence: FR)
  Receive Date: 20230404
  Receipt Date: 20230404
  Transmission Date: 20230721
  Serious: Yes (Hospitalization, Other)
  Sender: FDA-Public Use
  Company Number: None

PATIENT
  Age: 963 Month
  Sex: Male

DRUGS (24)
  1. DOCETAXEL [Suspect]
     Active Substance: DOCETAXEL
     Indication: Gastric cancer
     Dosage: FORM OF ADMIN: INFUSION AND ROUTE OF ADMIN: INTRAVENOUS ?50 MG/M2 ON DAYS 1 AND 15 EVERY FOUR WEEKS.
     Dates: start: 20220302, end: 20220302
  2. DOCETAXEL [Suspect]
     Active Substance: DOCETAXEL
     Indication: Oesophageal carcinoma
  3. FLUOROURACIL [Suspect]
     Active Substance: FLUOROURACIL
     Indication: Oesophageal carcinoma
     Dosage: FORM OF ADMIN: INFUSION AND ROUTE OF ADMIN: INTRAVENOUS?2600 MG/M2 ON DAYS 1 AND 15 EVERY FOUR WEEKS
     Dates: start: 20220302, end: 20220303
  4. FLUOROURACIL [Suspect]
     Active Substance: FLUOROURACIL
     Indication: Gastric cancer
  5. OXALIPLATIN [Suspect]
     Active Substance: OXALIPLATIN
     Indication: Oesophageal carcinoma
     Dosage: FORM OF ADMIN: INFUSION AND ROUTE OF ADMIN: INTRAVENOUS?85 MG/M2 ON DAYS 1 AND 15 EVERY FOUR WEEKS
     Dates: start: 20220302, end: 20220302
  6. OXALIPLATIN [Suspect]
     Active Substance: OXALIPLATIN
     Indication: Gastric cancer
  7. SODIUM BICARBONATE SOLUTION [Concomitant]
     Indication: Prophylaxis
     Dosage: ROUTE OF ADMIN: OROMUCOSAL USE?1 MOUTHWASH  THREE TIMES A DAY
     Dates: start: 20220302, end: 202203
  8. APREPITANT [Concomitant]
     Active Substance: APREPITANT
     Indication: Premedication
     Dosage: ROUTE OF ADMIN: ORAL?80 MG  EVERY D2 OR D3 OF EVERY CYCLE OF CHEMOTHERAPY
     Dates: start: 20220303, end: 20220304
  9. APREPITANT [Concomitant]
     Active Substance: APREPITANT
     Dosage: ROUTE OF ADMIN: ORAL?125 MG EVERY D1 OF EVERY CYCLE OF CHEMOTHERAPY
     Dates: start: 20220302, end: 20220302
  10. MONTMORILLONITE [Concomitant]
     Active Substance: MONTMORILLONITE
     Indication: Prophylaxis against diarrhoea
     Dosage: ROUTE OF ADMIN: ORAL
     Dates: start: 20220302, end: 202203
  11. METOCLOPRAMIDE [Concomitant]
     Active Substance: METOCLOPRAMIDE
     Indication: Prophylaxis of nausea and vomiting
     Dosage: ROUTE OF ADMIN: ORAL
     Dates: start: 20220302, end: 202203
  12. HERBALS\SAW PALMETTO [Concomitant]
     Active Substance: HERBALS\SAW PALMETTO
     Indication: Benign prostatic hyperplasia
     Dosage: ROUTE OF ADMIN: ORAL
     Dates: start: 2019
  13. LEUCOVORIN [Concomitant]
     Active Substance: LEUCOVORIN
     Indication: Oesophageal carcinoma
     Dosage: FORM OF ADMIN: INFUSION AND ROUTE OF ADMIN: INTRAVENOUS?200 MG/M2 ON DAYS 1 AND 15 EVERY FOUR WEEKS
     Dates: start: 20220302, end: 20220302
  14. LEUCOVORIN [Concomitant]
     Active Substance: LEUCOVORIN
     Indication: Gastric cancer
  15. EMOLLIENT CREAM [Concomitant]
     Indication: Skin disorder prophylaxis
     Dosage: FORM OF ADMIN: CREAM AND ROUTE OF ADMIN: CUTANEOUS?1 APPLICATION  TWO TIMES A DAY
     Dates: start: 20220302, end: 202203
  16. APIXABAN [Concomitant]
     Active Substance: APIXABAN
     Indication: Atrial fibrillation
     Dosage: ROUTE OF ADMIN: ORAL
     Dates: start: 2019, end: 202203
  17. DIETARY SUPPLEMENT [Concomitant]
     Active Substance: DIETARY SUPPLEMENT
     Indication: Dysphagia
     Dosage: ROUTE OF ADMIN: ORAL
     Dates: start: 202202
  18. ENOXAPARIN [Concomitant]
     Active Substance: ENOXAPARIN
     Indication: Thrombosis prophylaxis
     Dosage: 8000 IU
     Dates: start: 20220329, end: 20220404
  19. ENOXAPARIN [Concomitant]
     Active Substance: ENOXAPARIN
     Indication: Atrial fibrillation
  20. RACECADOTRIL [Concomitant]
     Active Substance: RACECADOTRIL
     Indication: Prophylaxis against diarrhoea
     Dosage: ROUTE OF ADMIN: ORAL
     Dates: start: 20220302, end: 202203
  21. PEGFILGRASTIM [Concomitant]
     Active Substance: PEGFILGRASTIM
     Indication: Prophylaxis
     Dosage: ROUTE OF ADMIN: SUBCUTANEOUS?6MG  EVERY D2 OF EACH CYCLE OF CHEMOTHERAPY
     Dates: start: 20220305, end: 20220428
  22. LANSOPRAZOLE [Concomitant]
     Active Substance: LANSOPRAZOLE
     Indication: Prophylaxis
     Dosage: ROUTE OF ADMIN: UNKNOWN
     Dates: start: 20220329, end: 20220504
  23. PREDNISOLONE [Concomitant]
     Active Substance: PREDNISOLONE
     Indication: Autoimmune hepatitis
     Dosage: ROUTE OF ADMIN: ORAL?40 MG  EVERY D1 AND D2 OF EACH CYCLE OF CHEMOTHERAPY
     Dates: start: 20220301, end: 20220303
  24. PREDNISOLONE [Concomitant]
     Active Substance: PREDNISOLONE
     Indication: Premedication

REACTIONS (1)
  - Autoimmune hepatitis [Not Recovered/Not Resolved]

NARRATIVE: CASE EVENT DATE: 20220314
